FAERS Safety Report 21751417 (Version 6)
Quarter: 2024Q2

REPORT INFORMATION
  Report Type: Spontaneous
  Country: PT (occurrence: PT)
  Receive Date: 20221220
  Receipt Date: 20240620
  Transmission Date: 20240716
  Serious: Yes (Hospitalization, Other)
  Sender: FDA-Public Use
  Company Number: PT-AUROBINDO-AUR-APL-2022-054984

PATIENT
  Age: 88 Year
  Sex: Male

DRUGS (12)
  1. BORTEZOMIB [Suspect]
     Active Substance: BORTEZOMIB
     Indication: Plasma cell myeloma
     Dosage: UNK, 5 CYCLES
     Route: 065
  2. BORTEZOMIB [Suspect]
     Active Substance: BORTEZOMIB
     Indication: Disease recurrence
     Dosage: UNK
     Route: 065
  3. BORTEZOMIB [Suspect]
     Active Substance: BORTEZOMIB
     Dosage: UNK (5 CYCLESFORM OF ADMIN: INJECTABLE)
     Route: 065
  4. MELPHALAN [Suspect]
     Active Substance: MELPHALAN
     Indication: Plasma cell myeloma
     Dosage: UNK, 5 CYCLES
     Route: 065
  5. MELPHALAN [Suspect]
     Active Substance: MELPHALAN
     Dosage: UNK
     Route: 065
  6. MELPHALAN [Suspect]
     Active Substance: MELPHALAN
     Dosage: UNK (5 CYCLES OF BORTEZOMIB/MELPHALAN/DEXAMETHASONE)
     Route: 065
  7. DEXAMETHASONE [Suspect]
     Active Substance: DEXAMETHASONE
     Indication: Plasma cell myeloma
     Dosage: UNK, 5 CYCLES
     Route: 065
  8. DEXAMETHASONE [Suspect]
     Active Substance: DEXAMETHASONE
     Indication: Pain
     Dosage: UNK
     Route: 065
  9. DEXAMETHASONE [Suspect]
     Active Substance: DEXAMETHASONE
     Indication: Disease recurrence
     Dosage: UNK (5 CYCLES OF BORTEZOMIB/MELPHALAN/DEXAMETHASONE)
     Route: 065
  10. LENALIDOMIDE [Concomitant]
     Active Substance: LENALIDOMIDE
     Indication: Plasma cell myeloma
     Dosage: UNK (REGIMEN WITH IXAZOMIB/LENALIDOMIDE/DEXAMETHASONE)
     Route: 065
  11. LENALIDOMIDE [Concomitant]
     Active Substance: LENALIDOMIDE
     Indication: Disease recurrence
     Dosage: UNK (TREATMENT WITH BORTEZOMIB/LENALIDOMIDE/DEXAMETHASONE AS A BRIDGE FOR TREATMENT WITH IXAZOMIB)
     Route: 065
  12. IXAZOMIB [Concomitant]
     Active Substance: IXAZOMIB
     Indication: Plasma cell myeloma
     Dosage: UNK (REGIMEN WITH IXAZOMIB/LENALIDOMIDE/DEXAMETHASONE)
     Route: 065

REACTIONS (3)
  - Plasma cell myeloma refractory [Unknown]
  - Neuromuscular toxicity [Unknown]
  - Neurotoxicity [Recovered/Resolved]
